FAERS Safety Report 7557536-4 (Version None)
Quarter: 2011Q2

REPORT INFORMATION
  Report Type: 
  Country: None (occurrence: None)
  Receive Date: 20110620
  Receipt Date: 20110616
  Transmission Date: 20111010
  Serious: Yes (Life-Threatening)
  Sender: FDA-Public Use
  Company Number: FR-ASTRAZENECA-2011SE33714

PATIENT
  Age: 56 Year
  Sex: Female

DRUGS (6)
  1. CRESTOR [Suspect]
     Route: 048
     Dates: end: 20110423
  2. IRBESARTAN AND HYDROCHLOROTHIAZIDE [Interacting]
     Dosage: 300 + 12.5 MG, 1 DF, DAILY
     Route: 048
     Dates: end: 20110423
  3. RAMIPRIL [Interacting]
     Route: 048
     Dates: end: 20110423
  4. LYRICA [Interacting]
     Route: 048
     Dates: end: 20110423
  5. METFORMIN HCL [Interacting]
     Route: 048
     Dates: end: 20110423
  6. EZETIMIBE [Interacting]
     Route: 048
     Dates: end: 20110423

REACTIONS (4)
  - RHABDOMYOLYSIS [None]
  - DRUG INTERACTION [None]
  - RENAL FAILURE ACUTE [None]
  - ACIDOSIS [None]
